FAERS Safety Report 21733752 (Version 1)
Quarter: 2022Q4

REPORT INFORMATION
  Report Type: Spontaneous
  Country: CN (occurrence: CN)
  Receive Date: 20221215
  Receipt Date: 20221215
  Transmission Date: 20230112
  Serious: Yes (Other)
  Sender: FDA-Public Use
  Company Number: CN-ELI_LILLY_AND_COMPANY-CN202212002636

PATIENT
  Age: 30 Year
  Sex: Male
  Weight: 46 kg

DRUGS (3)
  1. ZYPREXA [Suspect]
     Active Substance: OLANZAPINE
     Indication: Somatic symptom disorder
     Dosage: 5 MG, DAILY
     Route: 048
     Dates: start: 20221107
  2. CYMBALTA [Concomitant]
     Active Substance: DULOXETINE HYDROCHLORIDE
     Indication: Somatic symptom disorder
     Dosage: 60 MG, BID
     Route: 048
     Dates: start: 20221114, end: 20221202
  3. ALPRAZOLAM [Concomitant]
     Active Substance: ALPRAZOLAM
     Indication: Somatic symptom disorder
     Dosage: 0.6 MG, BID
     Route: 048
     Dates: start: 20221010, end: 20221202

REACTIONS (1)
  - Hepatic function abnormal [Unknown]

NARRATIVE: CASE EVENT DATE: 20221128
